FAERS Safety Report 17931347 (Version 1)
Quarter: 2020Q2

REPORT INFORMATION
  Report Type: Spontaneous
  Country: GB (occurrence: GB)
  Receive Date: 20200623
  Receipt Date: 20200623
  Transmission Date: 20200714
  Serious: Yes (Other)
  Sender: FDA-Public Use
  Company Number: GB-ASTRAZENECA-2020SE77966

PATIENT
  Age: 62 Year
  Sex: Male

DRUGS (3)
  1. OSIMERTINIB. [Suspect]
     Active Substance: OSIMERTINIB
     Indication: NON-SMALL CELL LUNG CANCER
     Route: 048
  2. GEFITINIB. [Suspect]
     Active Substance: GEFITINIB
     Indication: EGFR GENE MUTATION
     Dosage: 250 MG ALTERNATIVE DAYS
     Route: 048
     Dates: start: 2018
  3. GEFITINIB. [Suspect]
     Active Substance: GEFITINIB
     Indication: LUNG NEOPLASM MALIGNANT
     Dosage: 250 MG ALTERNATIVE DAYS
     Route: 048
     Dates: start: 2018

REACTIONS (4)
  - Bone disorder [Unknown]
  - Skin toxicity [Recovered/Resolved]
  - Metastases to liver [Unknown]
  - Pain [Recovering/Resolving]

NARRATIVE: CASE EVENT DATE: 2018
